FAERS Safety Report 7385810-3 (Version None)
Quarter: 2011Q1

REPORT INFORMATION
  Report Type: 
  Country: None (occurrence: None)
  Receive Date: 20110331
  Receipt Date: 20110325
  Transmission Date: 20110831
  Serious: Yes (Other)
  Sender: FDA-Public Use
  Company Number: US-PFIZER INC-2010127927

PATIENT
  Sex: Female
  Weight: 53.968 kg

DRUGS (6)
  1. DYAZIDE [Concomitant]
     Indication: HYPERTENSION
     Dosage: UNK
     Route: 048
  2. PROTONIX [Concomitant]
     Indication: GASTROOESOPHAGEAL REFLUX DISEASE
     Dosage: 5 MG, 1X/DAY
     Route: 048
  3. XANAX [Suspect]
     Indication: SLEEP DISORDER
     Dosage: 5 MG, 1X/DAY
     Route: 048
  4. COZAAR [Concomitant]
     Indication: HYPERTENSION
     Dosage: 40 MG, 1X/DAY
     Route: 048
  5. ASPIRIN [Concomitant]
     Dosage: UNK
  6. METFORMIN [Concomitant]
     Dosage: 500 MG, 1X/DAY
     Route: 048

REACTIONS (2)
  - SLEEP DISORDER [None]
  - HALLUCINATION [None]
